FAERS Safety Report 6471570-7 (Version None)
Quarter: 2009Q4

REPORT INFORMATION
  Report Type: 
  Country: None (occurrence: None)
  Receive Date: 20091203
  Receipt Date: 20091125
  Transmission Date: 20100525
  Serious: Yes (Hospitalization)
  Sender: FDA-Public Use
  Company Number: DE-TEVA-213367ISR

PATIENT
  Age: 85 Year
  Sex: Female
  Weight: 69 kg

DRUGS (2)
  1. RAMIPRIL [Suspect]
     Indication: HYPERTENSION
     Route: 048
     Dates: start: 20070801
  2. SULPIRIDE [Suspect]
     Route: 048

REACTIONS (1)
  - FAECALOMA [None]
